FAERS Safety Report 9485827 (Version 1)
Quarter: 2013Q3

REPORT INFORMATION
  Report Type: Report from Study
  Country: US (occurrence: US)
  Receive Date: 20130829
  Receipt Date: 20130829
  Transmission Date: 20140515
  Serious: Yes (Hospitalization)
  Sender: FDA-Public Use
  Company Number: PHEH2013US018138

PATIENT
  Sex: Female

DRUGS (2)
  1. TOBI [Suspect]
     Indication: CYSTIC FIBROSIS
     Dosage: 300 UKN, BID
  2. TOBI [Suspect]
     Indication: MECONIUM ILEUS

REACTIONS (3)
  - Cystic fibrosis [Unknown]
  - Meconium ileus [Unknown]
  - Condition aggravated [Unknown]
